FAERS Safety Report 25058924 (Version 2)
Quarter: 2025Q1

REPORT INFORMATION
  Report Type: Report from Study
  Country: CN (occurrence: CN)
  Receive Date: 20250310
  Receipt Date: 20250317
  Transmission Date: 20250409
  Serious: Yes (Death, Life-Threatening, Hospitalization, Other)
  Sender: SANOFI AVENTIS
  Company Number: CN-SA-2025SA004502

PATIENT
  Age: 66 Year
  Sex: Male
  Weight: 68.5 kg

DRUGS (25)
  1. OXALIPLATIN [Suspect]
     Active Substance: OXALIPLATIN
     Indication: Diffuse large B-cell lymphoma
     Dosage: 100 MG/M2, Q3W
     Route: 042
     Dates: start: 20241220, end: 20241220
  2. RITUXIMAB [Suspect]
     Active Substance: RITUXIMAB
     Indication: Diffuse large B-cell lymphoma
     Dosage: 375 MG/M2, Q3W
     Route: 042
     Dates: start: 20241220, end: 20241220
  3. GEMCITABINE [Suspect]
     Active Substance: GEMCITABINE
     Indication: Diffuse large B-cell lymphoma
     Dosage: 1000 MG/M2, Q3W
     Route: 042
     Dates: start: 20241220, end: 20241220
  4. METOPROLOL TARTRATE [Concomitant]
     Active Substance: METOPROLOL TARTRATE
     Indication: Hypertension
     Dates: start: 201001
  5. RACEANISODAMINE HYDROCHLORIDE [Concomitant]
     Indication: Intestinal obstruction
     Dates: start: 20241211, end: 20241211
  6. SIMVASTATIN [Concomitant]
     Active Substance: SIMVASTATIN
     Indication: Hypertension
     Dates: start: 201001
  7. GLYCERIN [Concomitant]
     Active Substance: GLYCERIN
     Indication: Intestinal obstruction
     Dates: start: 20241205, end: 20241219
  8. ONDANSETRON HYDROCHLORIDE [Concomitant]
     Active Substance: ONDANSETRON HYDROCHLORIDE
     Indication: Vomiting
     Dates: start: 20241220, end: 20241220
  9. ONDANSETRON HYDROCHLORIDE [Concomitant]
     Active Substance: ONDANSETRON HYDROCHLORIDE
     Indication: Prophylaxis
     Dates: start: 20241220, end: 20241220
  10. TRIMEBUTINE MALEATE [Concomitant]
     Active Substance: TRIMEBUTINE MALEATE
     Indication: Intestinal obstruction
     Dosage: 0.6 G, BID
     Dates: start: 20241211, end: 20241215
  11. CIMETIDINE [Concomitant]
     Active Substance: CIMETIDINE
     Indication: Gastrointestinal disorder prophylaxis
     Dosage: 2 ML, QD
     Dates: start: 20241206, end: 20241226
  12. POTASSIUM CHLORIDE [Concomitant]
     Active Substance: POTASSIUM CHLORIDE
     Indication: Fluid replacement
     Dosage: 5 ML, QD
     Dates: start: 20241206, end: 20241226
  13. ASCORBIC ACID [Concomitant]
     Active Substance: ASCORBIC ACID
     Indication: Fluid replacement
     Dosage: 1 G, QD
     Dates: start: 20241206, end: 20241226
  14. PYRIDOXINE [Concomitant]
     Active Substance: PYRIDOXINE
     Indication: Fluid replacement
     Dosage: 100 MG, QD
     Dates: start: 20241206, end: 20241226
  15. ELECTROLYTES NOS;GLUCOSE [Concomitant]
     Dates: start: 20241206, end: 20241212
  16. ZHI FANG RU(10%)/AN JI SUAN(15)/PU TAO TANG(20%) [Concomitant]
     Dates: start: 20241210, end: 20241215
  17. PANTOPRAZOLE SODIUM [Concomitant]
     Active Substance: PANTOPRAZOLE SODIUM
     Indication: Gastrointestinal disorder prophylaxis
     Dates: start: 20241211, end: 20241211
  18. PANTOPRAZOLE SODIUM [Concomitant]
     Active Substance: PANTOPRAZOLE SODIUM
     Dates: start: 20241224, end: 20241224
  19. MORPHINE HYDROCHLORIDE [Concomitant]
     Active Substance: MORPHINE HYDROCHLORIDE
     Indication: Analgesic therapy
     Route: 042
     Dates: start: 20241212, end: 20241212
  20. IBUPROFEN [Concomitant]
     Active Substance: IBUPROFEN
     Indication: Prophylaxis
     Dates: start: 20241220, end: 20241220
  21. DIPHENHYDRAMINE HYDROCHLORIDE [Concomitant]
     Active Substance: DIPHENHYDRAMINE HYDROCHLORIDE
     Indication: Prophylaxis
     Dates: start: 20241220, end: 20241220
  22. OXYCODONE HYDROCHLORIDE [Concomitant]
     Active Substance: OXYCODONE HYDROCHLORIDE
     Indication: Analgesic therapy
     Dosage: 10 MG, BID
     Dates: start: 20241215, end: 20241223
  23. OXYCODONE HYDROCHLORIDE [Concomitant]
     Active Substance: OXYCODONE HYDROCHLORIDE
     Indication: Nausea
     Dates: start: 20241220, end: 20241220
  24. OXYCODONE HYDROCHLORIDE [Concomitant]
     Active Substance: OXYCODONE HYDROCHLORIDE
     Indication: Vomiting
  25. OXYCODONE HYDROCHLORIDE [Concomitant]
     Active Substance: OXYCODONE HYDROCHLORIDE
     Indication: Prophylaxis

REACTIONS (7)
  - Malignant neoplasm progression [Fatal]
  - White blood cell count decreased [Recovered/Resolved]
  - Platelet count decreased [Not Recovered/Not Resolved]
  - Platelet count decreased [Not Recovered/Not Resolved]
  - Platelet count decreased [Not Recovered/Not Resolved]
  - Nausea [Recovered/Resolved]
  - Vomiting [Recovered/Resolved]

NARRATIVE: CASE EVENT DATE: 20241220
